FAERS Safety Report 9469329 (Version 2)
Quarter: 2013Q3

REPORT INFORMATION
  Report Type: Spontaneous
  Country: US (occurrence: None)
  Receive Date: 20130815
  Receipt Date: 20130823
  Transmission Date: 20140515
  Serious: Yes (Other)
  Sender: FDA-Public Use
  Company Number: AUR-APL-2013-06626

PATIENT
  Age: 28 Year
  Sex: Male

DRUGS (1)
  1. TRIMETHOPRIM + SULFAMETHOXAZOLE [Suspect]
     Indication: PRODUCT USED FOR UNKNOWN INDICATION

REACTIONS (8)
  - Hyponatraemia [None]
  - Hypovolaemia [None]
  - Renin increased [None]
  - Blood aldosterone increased [None]
  - Urine sodium increased [None]
  - Drug hypersensitivity [None]
  - Urticaria [None]
  - Hypoxia [None]
